FAERS Safety Report 10967557 (Version 4)
Quarter: 2015Q2

REPORT INFORMATION
  Report Type: Spontaneous
  Country: US (occurrence: US)
  Receive Date: 20150330
  Receipt Date: 20150622
  Transmission Date: 20150821
  Serious: No
  Sender: FDA-Public Use
  Company Number: US-PFIZER INC-2015106080

PATIENT
  Age: 68 Year
  Sex: Female

DRUGS (1)
  1. ESTRING [Suspect]
     Active Substance: ESTRADIOL
     Indication: HAEMORRHAGE
     Dosage: 1 DF, EVERY 3 MONTHS

REACTIONS (2)
  - Euphoric mood [Unknown]
  - Off label use [Unknown]
